FAERS Safety Report 11098318 (Version 1)
Quarter: 2015Q2

REPORT INFORMATION
  Report Type: Spontaneous
  Country: DE (occurrence: DE)
  Receive Date: 20150507
  Receipt Date: 20150507
  Transmission Date: 20150821
  Serious: Yes (Hospitalization)
  Sender: FDA-Public Use
  Company Number: DE-TEVA-559761GER

PATIENT
  Age: 4 Year
  Sex: Male

DRUGS (1)
  1. AMOXI 250 TS [Suspect]
     Active Substance: AMOXICILLIN
     Indication: MIDDLE EAR INFLAMMATION

REACTIONS (5)
  - Genital discomfort [Recovered/Resolved]
  - Genitals enlarged [Recovered/Resolved]
  - Testicular pain [Recovered/Resolved]
  - Rash macular [Recovered/Resolved]
  - Genital erythema [Recovered/Resolved]
